FAERS Safety Report 5553490-5 (Version None)
Quarter: 2007Q4

REPORT INFORMATION
  Report Type: 
  Country: None (occurrence: None)
  Receive Date: 20071213
  Receipt Date: 20071206
  Transmission Date: 20080405
  Serious: Yes (Other)
  Sender: FDA-Public Use
  Company Number: US-JNJFOC-20071202637

PATIENT
  Sex: Female

DRUGS (2)
  1. LEVAQUIN [Suspect]
     Indication: RESPIRATORY TRACT INFECTION
     Route: 048
  2. METHOTREXAT [Concomitant]
     Indication: SYSTEMIC LUPUS ERYTHEMATOSUS
     Route: 048

REACTIONS (1)
  - PAIN IN EXTREMITY [None]
